FAERS Safety Report 13957171 (Version 1)
Quarter: 2017Q3

REPORT INFORMATION
  Report Type: Spontaneous
  Country: GB (occurrence: GB)
  Receive Date: 20170912
  Receipt Date: 20170912
  Transmission Date: 20171128
  Serious: Yes (Other)
  Sender: FDA-Public Use
  Company Number: GB-CIPLA LTD.-2017GB16082

PATIENT

DRUGS (8)
  1. LIDOCAINE [Concomitant]
     Indication: PLEURITIC PAIN
     Dosage: 1 DF, QD 1 PATCH: 12 HOURS ON, 12 HOURS OFF
     Route: 062
     Dates: start: 20170722
  2. SEEBRI BREEZHALER [Concomitant]
     Active Substance: GLYCOPYRROLATE
     Dosage: 44?G, QD
     Route: 055
  3. UNIPHYLLIN CONTINUS [Concomitant]
     Active Substance: THEOPHYLLINE ANHYDROUS
     Indication: DYSPNOEA
     Dosage: 200 MG, BID
     Route: 048
     Dates: start: 20170721
  4. MONTELUKAST SODIUM. [Suspect]
     Active Substance: MONTELUKAST SODIUM
     Indication: DYSPNOEA
     Dosage: 10 MG, QD (EVERY NIGHT)
     Route: 048
     Dates: start: 20170721, end: 20170729
  5. AMLODIPINE [Concomitant]
     Indication: HYPERTENSION
     Dosage: 5 MG, QD
     Route: 048
  6. OXYNORM [Concomitant]
     Active Substance: OXYCODONE HYDROCHLORIDE
     Indication: PLEURITIC PAIN
     Dosage: 2.5MG-5MG, MAX 4 HOURLY. 5G/5ML SOLUTION.
     Route: 048
     Dates: start: 20170722, end: 20170805
  7. SYMBICORT [Concomitant]
     Dosage: 1 DF, BID, 400/12
     Route: 055
  8. INDAPAMIDE [Concomitant]
     Indication: HYPERTENSION
     Dosage: 2.5 MG, QD
     Route: 048

REACTIONS (7)
  - Gait disturbance [Recovered/Resolved]
  - Swollen tongue [Recovered/Resolved]
  - Tongue dry [Unknown]
  - Diarrhoea [Recovered/Resolved]
  - Tongue discolouration [Recovered/Resolved]
  - Paraesthesia [Recovered/Resolved]
  - Oral pain [Recovered/Resolved]

NARRATIVE: CASE EVENT DATE: 20170722
